FAERS Safety Report 16976028 (Version 1)
Quarter: 2019Q4

REPORT INFORMATION
  Report Type: Spontaneous
  Country: AU (occurrence: AU)
  Receive Date: 20191030
  Receipt Date: 20191030
  Transmission Date: 20200122
  Serious: Yes (Death, Hospitalization)
  Sender: FDA-Public Use
  Company Number: AU-ASTRAZENECA-2019SF52902

PATIENT
  Age: 79 Year
  Sex: Male

DRUGS (1)
  1. DURVALUMAB. [Suspect]
     Active Substance: DURVALUMAB
     Route: 030
     Dates: end: 201909

REACTIONS (3)
  - Malignant neoplasm progression [Fatal]
  - Respiratory failure [Fatal]
  - Eastern Cooperative Oncology Group performance status worsened [Unknown]
